FAERS Safety Report 19798773 (Version 5)
Quarter: 2022Q2

REPORT INFORMATION
  Report Type: Report from Study
  Country: CO (occurrence: CO)
  Receive Date: 20210907
  Receipt Date: 20220517
  Transmission Date: 20220721
  Serious: Yes (Other)
  Sender: FDA-Public Use
  Company Number: CO-002147023-NVSC2021CO195341

PATIENT

DRUGS (11)
  1. RUXOLITINIB [Suspect]
     Active Substance: RUXOLITINIB
     Indication: Polycythaemia vera
     Dosage: 20 MG, Q12H
     Route: 048
     Dates: start: 202107
  2. RUXOLITINIB [Suspect]
     Active Substance: RUXOLITINIB
     Dosage: 10 MG, Q12H
     Route: 048
  3. RUXOLITINIB [Suspect]
     Active Substance: RUXOLITINIB
     Dosage: UNK
     Route: 048
  4. LOSARTAN [Suspect]
     Active Substance: LOSARTAN
     Indication: Hypertension
     Dosage: 50 MG, Q12H (YEAR AND A HALF AGO)
     Route: 048
  5. PANTOPRAZOLE [Suspect]
     Active Substance: PANTOPRAZOLE
     Indication: Gastritis
     Dosage: 20 MG, Q24H (1 YEAR AGO)
     Route: 048
  6. FOLIC ACID [Concomitant]
     Active Substance: FOLIC ACID
     Indication: Product used for unknown indication
     Dosage: UNK, QD (STARTED 18 YEAR AGO)
     Route: 048
  7. METHOTREXATE [Concomitant]
     Active Substance: METHOTREXATE
     Indication: Product used for unknown indication
     Dosage: UNK, QD (STARTED 18 YEAR AGO)
     Route: 048
  8. METHOTREXATE [Concomitant]
     Active Substance: METHOTREXATE
     Dosage: UNK (2 TABLE TS ON SATURDAY AND 2 TABLE  SUNDAY (EVERY 8 DAYS )
     Route: 065
  9. AMLODIPINE [Concomitant]
     Active Substance: AMLODIPINE BESYLATE
     Indication: Hypertension
     Dosage: 5 MG, Q24H (YEAR AND AND HALF AGO)
     Route: 048
  10. LEVOTHYROXINE [Concomitant]
     Active Substance: LEVOTHYROXINE
     Indication: Hypothyroidism
     Dosage: 50 MG, Q12H (2 YEARS AGO)
     Route: 048
  11. ASPIRIN [Concomitant]
     Active Substance: ASPIRIN
     Indication: Product used for unknown indication
     Dosage: 1 MG, Q12H
     Route: 048

REACTIONS (13)
  - Blindness [Not Recovered/Not Resolved]
  - Optic ischaemic neuropathy [Unknown]
  - Thrombosis [Unknown]
  - Systemic lupus erythematosus [Unknown]
  - Retinal vascular disorder [Unknown]
  - Vision blurred [Unknown]
  - Anorectal disorder [Recovered/Resolved]
  - Vulvovaginal dryness [Recovered/Resolved]
  - Oral mucosal exfoliation [Recovered/Resolved]
  - Haemoglobin increased [Unknown]
  - Haemoglobin decreased [Recovered/Resolved]
  - Constipation [Recovered/Resolved]
  - Inappropriate schedule of product administration [Unknown]
